FAERS Safety Report 19747811 (Version 1)
Quarter: 2021Q3

REPORT INFORMATION
  Report Type: Spontaneous
  Country: US (occurrence: US)
  Receive Date: 20210826
  Receipt Date: 20210826
  Transmission Date: 20211014
  Serious: Yes (Other)
  Sender: FDA-Public Use
  Company Number: US-AMGEN-USASP2021130554

PATIENT
  Age: 67 Year
  Sex: Male

DRUGS (1)
  1. OTEZLA [Suspect]
     Active Substance: APREMILAST
     Indication: PSORIASIS
     Dosage: 30 MILLIGRAM, BID
     Route: 048
     Dates: start: 202102

REACTIONS (6)
  - Therapeutic product effect incomplete [Unknown]
  - Diarrhoea [Unknown]
  - Arthralgia [Unknown]
  - Back pain [Unknown]
  - Abdominal discomfort [Unknown]
  - Haematochezia [Unknown]

NARRATIVE: CASE EVENT DATE: 2021
